FAERS Safety Report 14454085 (Version 2)
Quarter: 2018Q3

REPORT INFORMATION
  Report Type: Spontaneous
  Country: BR (occurrence: BR)
  Receive Date: 20180129
  Receipt Date: 20180720
  Transmission Date: 20181010
  Serious: Yes (Hospitalization)
  Sender: FDA-Public Use
  Company Number: BR-UCBSA-2015030523

PATIENT
  Age: 11 Year
  Sex: Female

DRUGS (8)
  1. OXCARBAZEPINE. [Concomitant]
     Active Substance: OXCARBAZEPINE
     Indication: PRODUCT USED FOR UNKNOWN INDICATION
     Dosage: 600 MG, UNK
  2. CLOBAZAM [Concomitant]
     Active Substance: CLOBAZAM
     Indication: EPILEPSY
     Dosage: 20 MG, UNK
     Dates: start: 2014
  3. CLOMIPRAMINA [Concomitant]
     Indication: EPILEPSY
     Dosage: 25 MG, UNK
     Dates: start: 2014
  4. FRISIUM [Concomitant]
     Active Substance: CLOBAZAM
     Indication: EPILEPSY
     Dosage: UNK
     Dates: start: 2014
  5. RISPERIDONE. [Concomitant]
     Active Substance: RISPERIDONE
     Indication: EPILEPSY
     Dosage: 2MG ? 1/4 OF TABLET
     Dates: start: 2014
  6. VIMPAT [Suspect]
     Active Substance: LACOSAMIDE
     Indication: EPILEPSY
     Dosage: 200 MG, 2X/DAY (BID)
     Route: 048
     Dates: start: 20150313
  7. TRILEPTAL [Concomitant]
     Active Substance: OXCARBAZEPINE
     Indication: EPILEPSY
     Dosage: UNK
     Dates: start: 2014
  8. TOPIRAMATO [Concomitant]
     Active Substance: TOPIRAMATE
     Indication: EPILEPSY
     Dosage: 100 MG, UNK
     Dates: start: 2014

REACTIONS (4)
  - Petit mal epilepsy [Not Recovered/Not Resolved]
  - Somnolence [Not Recovered/Not Resolved]
  - Off label use [Unknown]
  - Seizure [Not Recovered/Not Resolved]

NARRATIVE: CASE EVENT DATE: 20150313
